FAERS Safety Report 4332069-7 (Version None)
Quarter: 2004Q1

REPORT INFORMATION
  Report Type: 
  Country: None (occurrence: None)
  Receive Date: 20040330
  Receipt Date: 20040315
  Transmission Date: 20041129
  Serious: Yes (Other)
  Sender: FDA-Public Use
  Company Number: 235215

PATIENT
  Age: 9 Year
  Sex: Male
  Weight: 35 kg

DRUGS (1)
  1. NORDITROPIN SIMPLEXX (SOMATRIPTAN) SOLUTION FOR INJECTION [Suspect]
     Indication: GROWTH HORMONE DEFICIENCY
     Dosage: 1.1 MG, QD, SUBCUTANEOUS
     Route: 058
     Dates: start: 20011001

REACTIONS (1)
  - OSTEONECROSIS [None]
